FAERS Safety Report 9516697 (Version 1)
Quarter: 2013Q1

REPORT INFORMATION
  Report Type: Spontaneous
  Country: US (occurrence: None)
  Receive Date: 20130305
  Receipt Date: 20130305
  Transmission Date: 20140127
  Serious: Yes (Other)
  Sender: FDA-Public Use
  Company Number: 163-21880-12011817

PATIENT
  Age: 76 Year
  Sex: Male

DRUGS (3)
  1. REVLIMID (LENALIDOMIDE) (CAPSULES) [Suspect]
     Indication: PLASMA CELL MYELOMA
     Dosage: 10 MG, DAILY FOR 3 WKS ON AND 1 WEEK OFF, PO
     Dates: start: 202208
  2. VELCADE (UNKNOWN) [Suspect]
     Route: 042
     Dates: start: 20110815, end: 20111212
  3. DECADRON [Concomitant]

REACTIONS (2)
  - Bone marrow failure [None]
  - Hypoaesthesia [None]
